FAERS Safety Report 8058720-6 (Version None)
Quarter: 2012Q1

REPORT INFORMATION
  Report Type: 
  Country: None (occurrence: None)
  Receive Date: 20120120
  Receipt Date: 20120106
  Transmission Date: 20120608
  Serious: Yes (Hospitalization)
  Sender: FDA-Public Use
  Company Number: CA-JNJFOC-20120107539

PATIENT
  Age: 82 Year
  Sex: Female
  Weight: 85.7 kg

DRUGS (2)
  1. ORGARAN [Suspect]
     Indication: PRODUCT USED FOR UNKNOWN INDICATION
     Dosage: DOSE: 7500 UNITS
     Route: 058
     Dates: start: 20111227, end: 20120104
  2. REMICADE [Suspect]
     Indication: RHEUMATOID ARTHRITIS
     Route: 042

REACTIONS (2)
  - KNEE ARTHROPLASTY [None]
  - DEEP VEIN THROMBOSIS [None]
